FAERS Safety Report 10182734 (Version 1)
Quarter: 2014Q2

REPORT INFORMATION
  Report Type: Spontaneous
  Country: US (occurrence: None)
  Receive Date: 20140519
  Receipt Date: 20140519
  Transmission Date: 20141212
  Serious: Yes (Life-Threatening, Hospitalization)
  Sender: FDA-Public Use
  Company Number: None

PATIENT
  Age: 47 Year
  Sex: Female
  Weight: 99.79 kg

DRUGS (2)
  1. NEXPLANON [Suspect]
     Indication: HORMONE LEVEL ABNORMAL
     Dosage: 68MG  SUBDERMAL
     Route: 059
     Dates: start: 20140128, end: 20140509
  2. NEXPLANON [Suspect]
     Indication: CONTRACEPTION
     Dosage: 68MG  SUBDERMAL
     Route: 059
     Dates: start: 20140128, end: 20140509

REACTIONS (2)
  - Pulmonary embolism [None]
  - Oxygen saturation decreased [None]
